FAERS Safety Report 5036601-X (Version None)
Quarter: 2006Q2

REPORT INFORMATION
  Report Type: 
  Country: None (occurrence: None)
  Receive Date: 20060623
  Receipt Date: 20060601
  Transmission Date: 20061013
  Serious: Yes (Other)
  Sender: FDA-Public Use
  Company Number: SPVI-2006-00098

PATIENT
  Age: 86 Year
  Sex: Male

DRUGS (6)
  1. AGRYLIN [Suspect]
     Dosage: 1 MG 2X/DAY BID ORAL
     Route: 048
  2. ALTACE [Concomitant]
  3. LASIX [Concomitant]
  4. METOPROLOL SUCCINATE [Concomitant]
  5. SIMVASTATIN [Concomitant]
  6. ZANTAC [Concomitant]

REACTIONS (2)
  - NEPHRITIS INTERSTITIAL [None]
  - RENAL FAILURE ACUTE [None]
